FAERS Safety Report 10607401 (Version 1)
Quarter: 2014Q4

REPORT INFORMATION
  Report Type: Spontaneous
  Country: US (occurrence: None)
  Receive Date: 20141124
  Receipt Date: 20141124
  Transmission Date: 20150529
  Serious: Yes (Other)
  Sender: FDA-Public Use
  Company Number: None

PATIENT
  Age: 27 Year
  Sex: Male
  Weight: 94 kg

DRUGS (3)
  1. LIDOCAINE. [Concomitant]
     Active Substance: LIDOCAINE
  2. SUCCINYLCHOLINE [Suspect]
     Active Substance: SUCCINYLCHOLINE
     Indication: HEAD INJURY
     Dosage: IV PUSH
     Route: 042
     Dates: start: 20141116, end: 20141116
  3. ETOMIDATE. [Concomitant]
     Active Substance: ETOMIDATE

REACTIONS (2)
  - Trismus [None]
  - Drug ineffective [None]

NARRATIVE: CASE EVENT DATE: 20141116
